FAERS Safety Report 4434139-1 (Version None)
Quarter: 2004Q3

REPORT INFORMATION
  Report Type: 
  Country: None (occurrence: None)
  Receive Date: 20040825
  Receipt Date: 20040817
  Transmission Date: 20050211
  Serious: Yes (Other)
  Sender: FDA-Public Use
  Company Number: DE-2004-029937

PATIENT
  Age: 42 Year
  Sex: Female
  Weight: 72 kg

DRUGS (2)
  1. MIRENA [Suspect]
     Indication: CONTRACEPTION
     Dosage: 20 UG/DAY,CONT, INTRA-UTERINE
     Route: 015
     Dates: start: 20020906
  2. INSULIN [Concomitant]

REACTIONS (1)
  - FOCAL NODULAR HYPERPLASIA [None]
